FAERS Safety Report 8428963-8 (Version None)
Quarter: 2012Q2

REPORT INFORMATION
  Report Type: 
  Country: None (occurrence: None)
  Receive Date: 20120612
  Receipt Date: 20110913
  Transmission Date: 20120825
  Serious: No
  Sender: FDA-Public Use
  Company Number: US-COVIDIEN/TYCO HEALTHCARE/MALLINCKRODT-T201101808

PATIENT
  Age: 65 Year
  Sex: Female

DRUGS (3)
  1. ULTRATAG [Suspect]
     Indication: MULTIPLE GATED ACQUISITION SCAN
     Dosage: UNK
     Route: 042
     Dates: start: 20110913, end: 20110913
  2. ULTRA-TECHNEKOW [Concomitant]
     Dosage: UNK UNK, SINGLE
     Route: 042
     Dates: start: 20110913, end: 20110913
  3. HEPARIN [Concomitant]
     Dosage: 0.2 ML, SINGLE
     Route: 042
     Dates: start: 20110913, end: 20110913

REACTIONS (1)
  - DRUG INEFFECTIVE [None]
